FAERS Safety Report 16704204 (Version 1)
Quarter: 2019Q3

REPORT INFORMATION
  Report Type: Spontaneous
  Country: NL (occurrence: NL)
  Receive Date: 20190814
  Receipt Date: 20190814
  Transmission Date: 20191004
  Serious: Yes (Other)
  Sender: FDA-Public Use
  Company Number: NL-TEVA-2019-NL-1091076

PATIENT
  Sex: Female
  Weight: 82 kg

DRUGS (7)
  1. DEXAMETHASON [Interacting]
     Active Substance: DEXAMETHASONE
     Route: 065
  2. CHEMO-KURENACT DENS DOSE [Concomitant]
     Route: 065
     Dates: end: 201901
  3. CHEMO-CURES: ACT DENS DOSE [Concomitant]
     Route: 065
     Dates: end: 201901
  4. EN 4X LONQUEX INJECTIE [Concomitant]
     Route: 065
     Dates: start: 201809, end: 201810
  5. TAMOXIFEN TABLET, 20 MG (MILLIGRAM) [Suspect]
     Active Substance: TAMOXIFEN
     Indication: BREAST CANCER
     Route: 065
     Dates: start: 20171115, end: 20180701
  6. SOMETHING AGAINST NAUSEA [Concomitant]
     Route: 065
  7. TAVEGIL [Concomitant]
     Active Substance: CLEMASTINE FUMARATE
     Route: 065

REACTIONS (1)
  - Ovarian germ cell teratoma stage I [Recovered/Resolved]
